FAERS Safety Report 4637365-1 (Version None)
Quarter: 2005Q2

REPORT INFORMATION
  Report Type: 
  Country: None (occurrence: None)
  Receive Date: 20050328
  Receipt Date: 20041025
  Transmission Date: 20051028
  Serious: No
  Sender: FDA-Public Use
  Company Number: USA041082068

PATIENT
  Age: 5 Year
  Sex: Female

DRUGS (1)
  1. STRATTERA [Suspect]
     Dosage: 25 MG DAY
     Dates: start: 20041001

REACTIONS (1)
  - ABNORMAL BEHAVIOUR [None]
